FAERS Safety Report 11900450 (Version 2)
Quarter: 2016Q1

REPORT INFORMATION
  Report Type: Report from Study
  Country: HU (occurrence: HU)
  Receive Date: 20160108
  Receipt Date: 20160115
  Transmission Date: 20160526
  Serious: Yes (Death, Life-Threatening, Disabling, Other)
  Sender: FDA-Public Use
  Company Number: HU-ASTRAZENECA-2016SE01605

PATIENT
  Age: 20600 Day
  Sex: Female

DRUGS (17)
  1. MEFORAL [Concomitant]
  2. KALIUM R [Concomitant]
  3. EBRANTIL [Concomitant]
     Active Substance: URAPIDIL
  4. TICAGRELOR [Suspect]
     Active Substance: TICAGRELOR
     Indication: ISCHAEMIC HEART DISEASE PROPHYLAXIS
     Route: 048
     Dates: start: 20151214
  5. NEBIVOLOL. [Concomitant]
     Active Substance: NEBIVOLOL
  6. VALSARTAN. [Concomitant]
     Active Substance: VALSARTAN
  7. FRAXIPARINE [Concomitant]
     Active Substance: NADROPARIN CALCIUM
     Dates: start: 20151029
  8. TICAGRELOR [Suspect]
     Active Substance: TICAGRELOR
     Indication: ISCHAEMIC HEART DISEASE PROPHYLAXIS
     Dosage: LOADING DOSE
     Route: 048
     Dates: start: 20151016
  9. AMLODIPIN [Concomitant]
     Active Substance: AMLODIPINE BESYLATE
  10. LATANOPROST. [Concomitant]
     Active Substance: LATANOPROST
  11. RABEPRAZOLE SODIUM. [Concomitant]
     Active Substance: RABEPRAZOLE SODIUM
  12. FUROSEMIDE. [Concomitant]
     Active Substance: FUROSEMIDE
  13. RILMENIDINE [Concomitant]
     Active Substance: RILMENIDINE
  14. ATORVOX [Concomitant]
     Dates: start: 20151019
  15. TICAGRELOR [Suspect]
     Active Substance: TICAGRELOR
     Indication: ISCHAEMIC HEART DISEASE PROPHYLAXIS
     Route: 048
     Dates: start: 20151017, end: 20151028
  16. GLICLADA [Concomitant]
     Active Substance: GLICLAZIDE
  17. ASPIRIN PROTECT [Concomitant]
     Active Substance: ASPIRIN
     Route: 048
     Dates: start: 20151029

REACTIONS (1)
  - Death [Fatal]

NARRATIVE: CASE EVENT DATE: 20160106
